FAERS Safety Report 7361339-3 (Version None)
Quarter: 2011Q1

REPORT INFORMATION
  Report Type: 
  Country: None (occurrence: None)
  Receive Date: 20110318
  Receipt Date: 20110314
  Transmission Date: 20110831
  Serious: Yes (Hospitalization)
  Sender: FDA-Public Use
  Company Number: B0705695A

PATIENT
  Sex: Male

DRUGS (6)
  1. ACTRAPID [Concomitant]
     Route: 042
     Dates: start: 20110109, end: 20110209
  2. ZANTAC [Suspect]
     Dosage: 200MG PER DAY
     Route: 042
     Dates: start: 20110131, end: 20110204
  3. CALCIPARINE [Concomitant]
     Dosage: 10000IU PER DAY
     Dates: start: 20110113, end: 20110209
  4. NEXIUM [Concomitant]
     Dosage: 40MG PER DAY
     Route: 042
     Dates: start: 20110120, end: 20110130
  5. ERYTHROCINE [Concomitant]
     Dosage: 750MG PER DAY
     Route: 042
     Dates: start: 20110113, end: 20110204
  6. DOBUTREX [Concomitant]
     Route: 065
     Dates: start: 20110123, end: 20110206

REACTIONS (1)
  - EOSINOPHILIA [None]
